FAERS Safety Report 5239211-4 (Version None)
Quarter: 2007Q1

REPORT INFORMATION
  Report Type: 
  Country: None (occurrence: None)
  Receive Date: 20070212
  Receipt Date: 20070201
  Transmission Date: 20070707
  Serious: Yes (Hospitalization)
  Sender: FDA-Public Use
  Company Number: 2007SP000858

PATIENT
  Age: 29 Year
  Sex: Female

DRUGS (2)
  1. CLARITIN [Suspect]
     Indication: PITYRIASIS ROSEA
     Dosage: 10 MG; UNK; PO
     Route: 048
     Dates: start: 20061211
  2. THERAFLU /00446801/ [Concomitant]

REACTIONS (9)
  - ASTHENIA [None]
  - BLOOD PRESSURE SYSTOLIC INCREASED [None]
  - DIZZINESS [None]
  - FEELING ABNORMAL [None]
  - HYPERSENSITIVITY [None]
  - PALLOR [None]
  - PERIPHERAL COLDNESS [None]
  - TRANSIENT ISCHAEMIC ATTACK [None]
  - UNEVALUABLE EVENT [None]
